FAERS Safety Report 8604566-7 (Version None)
Quarter: 2012Q3

REPORT INFORMATION
  Report Type: 
  Country: None (occurrence: None)
  Receive Date: 20120808
  Receipt Date: 20120808
  Transmission Date: 20120928
  Serious: Yes (Life-Threatening, Hospitalization)
  Sender: FDA-Public Use
  Company Number: None

PATIENT
  Age: 56 Year
  Sex: Male
  Weight: 44.1 kg

DRUGS (1)
  1. CEFTAROLINE -TEFLARO- 600 MG FACTA FARMACEUTICI/FOREST [Suspect]
     Indication: ARTHRITIS BACTERIAL
     Dosage: 600MG EVERY 12 HOURS IV
     Route: 042
     Dates: start: 20120712, end: 20120724

REACTIONS (2)
  - DRUG HYPERSENSITIVITY [None]
  - STEVENS-JOHNSON SYNDROME [None]
